FAERS Safety Report 16186419 (Version 5)
Quarter: 2019Q3

REPORT INFORMATION
  Report Type: Spontaneous
  Country: NL (occurrence: NL)
  Receive Date: 20190411
  Receipt Date: 20190927
  Transmission Date: 20191004
  Serious: Yes (Life-Threatening, Hospitalization, Other)
  Sender: FDA-Public Use
  Company Number: NL-TEVA-2019-NL-1035151

PATIENT
  Age: 68 Year
  Sex: Male

DRUGS (5)
  1. ALFACALCIDOL [Interacting]
     Active Substance: ALFACALCIDOL
     Indication: PRODUCT USED FOR UNKNOWN INDICATION
     Route: 065
  2. BUMETANIDE. [Concomitant]
     Active Substance: BUMETANIDE
     Indication: PRODUCT USED FOR UNKNOWN INDICATION
     Dosage: FOR A FEW MONTHS
     Route: 065
     Dates: start: 20160725
  3. IMATINIB. [Suspect]
     Active Substance: IMATINIB MESYLATE
     Indication: CHRONIC MYELOID LEUKAEMIA (IN REMISSION)
     Dosage: 400 MILLIGRAM; MAINTENANCE THERAPY
     Route: 065
     Dates: start: 201411, end: 201610
  4. CLOPIDOGREL [Interacting]
     Active Substance: CLOPIDOGREL BISULFATE
     Indication: PRODUCT USED FOR UNKNOWN INDICATION
     Route: 065
     Dates: start: 201607, end: 201705
  5. SIMVASTATIN. [Interacting]
     Active Substance: SIMVASTATIN
     Indication: CHRONIC MYELOID LEUKAEMIA
     Route: 065
     Dates: start: 2007, end: 201806

REACTIONS (5)
  - Organising pneumonia [Recovered/Resolved]
  - Pulmonary toxicity [Recovered/Resolved]
  - Idiopathic interstitial pneumonia [Recovered/Resolved]
  - Drug interaction [Recovered/Resolved]
  - Interstitial lung disease [Recovered/Resolved]
